FAERS Safety Report 9892096 (Version 3)
Quarter: 2014Q1

REPORT INFORMATION
  Report Type: Report from Study
  Country: AU (occurrence: AU)
  Receive Date: 20140212
  Receipt Date: 20140227
  Transmission Date: 20141002
  Serious: Yes (Hospitalization)
  Sender: FDA-Public Use
  Company Number: AU-GLAXOSMITHKLINE-B0957279A

PATIENT
  Age: 62 Year
  Sex: Male
  Weight: 98 kg

DRUGS (12)
  1. PAZOPANIB [Suspect]
     Indication: RENAL CELL CARCINOMA
     Dosage: 800MG PER DAY
     Route: 048
  2. EVEROLIMUS [Suspect]
     Indication: RENAL CELL CARCINOMA
     Dosage: 10MG PER DAY
     Route: 048
     Dates: start: 20130815, end: 20131205
  3. ASPIRIN [Concomitant]
     Indication: PROPHYLAXIS
     Dosage: 100MG PER DAY
     Route: 048
     Dates: start: 20120501
  4. METOPROLOL [Concomitant]
     Indication: HYPERTENSION
     Dosage: 50MG TWICE PER DAY
     Route: 048
     Dates: start: 20120501
  5. GABAPENTIN [Concomitant]
     Indication: NEURALGIA
     Dosage: 300MG TWICE PER DAY
     Route: 048
     Dates: start: 20130201
  6. ATORVASTATIN [Concomitant]
     Indication: HYPERCHOLESTEROLAEMIA
     Dosage: 80MG PER DAY
     Route: 048
     Dates: start: 20111201
  7. TARGIN [Concomitant]
     Indication: PAIN
     Route: 048
     Dates: start: 20130201
  8. ENDONE [Concomitant]
     Indication: NEURALGIA
     Route: 048
     Dates: start: 20130201
  9. PARACETAMOL [Concomitant]
     Indication: MUSCULOSKELETAL CHEST PAIN
     Dosage: 500MG AS REQUIRED
     Route: 048
     Dates: start: 20130201
  10. MAXOLON [Concomitant]
     Indication: NAUSEA
     Route: 048
     Dates: start: 20131201
  11. METHADONE [Concomitant]
     Indication: PAIN
     Dates: start: 20131201
  12. FENTANYL [Concomitant]
     Indication: PAIN
     Dates: start: 20131201

REACTIONS (2)
  - Pain [Recovered/Resolved]
  - Nausea [Recovered/Resolved]
